FAERS Safety Report 5587631-0 (Version None)
Quarter: 2008Q1

REPORT INFORMATION
  Report Type: 
  Country: None (occurrence: None)
  Receive Date: 20080108
  Receipt Date: 20080103
  Transmission Date: 20080703
  Serious: Yes (Hospitalization)
  Sender: FDA-Public Use
  Company Number: S07-USA-06385-01

PATIENT
  Age: 74 Year
  Sex: Female

DRUGS (2)
  1. LEXAPRO [Suspect]
     Indication: DEPRESSION
     Dosage: 10 MG QD PO
     Route: 048
     Dates: start: 20071116
  2. AGGRENOX [Suspect]
     Indication: ANTICOAGULANT THERAPY
     Dates: start: 20071120, end: 20071120

REACTIONS (4)
  - BLOOD PRESSURE DECREASED [None]
  - CLAUSTROPHOBIA [None]
  - HEADACHE [None]
  - NO ADVERSE EVENT [None]
